FAERS Safety Report 10023772 (Version 1)
Quarter: 2014Q1

REPORT INFORMATION
  Report Type: Spontaneous
  Country: US (occurrence: None)
  Receive Date: 20140114
  Receipt Date: 20140114
  Transmission Date: 20141002
  Serious: Yes (Hospitalization, Other)
  Sender: FDA-Public Use
  Company Number: 2007S1006216

PATIENT
  Age: 60 Year
  Sex: Female

DRUGS (9)
  1. PHOSPHO-SODA [Suspect]
     Indication: COLONOSCOPY
     Dosage: 2 IN 24 HOURS
     Route: 048
     Dates: start: 20070329, end: 20070329
  2. DIOVAN [Concomitant]
  3. NAPROSYN [Concomitant]
  4. HYDROCHLOROTHIAZIDE [Concomitant]
  5. LABETALOL [Concomitant]
  6. VOLTAREN [Concomitant]
  7. CELEBREX [Concomitant]
  8. NEXIUM [Concomitant]
  9. PREMARIN [Concomitant]

REACTIONS (11)
  - Acute phosphate nephropathy [None]
  - Arteriosclerosis [None]
  - Renal failure acute [None]
  - Renal tubular disorder [None]
  - Thrombotic microangiopathy [None]
  - Gastritis erosive [None]
  - Polyp [None]
  - Renal failure chronic [None]
  - Nephrogenic anaemia [None]
  - Nephrocalcinosis [None]
  - Dizziness [None]
